FAERS Safety Report 8373734-4 (Version None)
Quarter: 2012Q2

REPORT INFORMATION
  Report Type: 
  Country: None (occurrence: None)
  Receive Date: 20120521
  Receipt Date: 20120514
  Transmission Date: 20120825
  Serious: Yes (Other)
  Sender: FDA-Public Use
  Company Number: US-PFIZER INC-2012101674

PATIENT
  Sex: Female
  Weight: 33.56 kg

DRUGS (2)
  1. GABAPENTIN [Suspect]
     Dosage: UNK
  2. REVATIO [Suspect]
     Dosage: UNK

REACTIONS (5)
  - UNDERWEIGHT [None]
  - HEADACHE [None]
  - DYSPNOEA [None]
  - NASAL CONGESTION [None]
  - EYELID OEDEMA [None]
